FAERS Safety Report 4726250-2 (Version None)
Quarter: 2005Q3

REPORT INFORMATION
  Report Type: 
  Country: None (occurrence: None)
  Receive Date: 20050725
  Receipt Date: 20050725
  Transmission Date: 20060218
  Serious: Yes (Other)
  Sender: FDA-Public Use
  Company Number: None

PATIENT
  Sex: Female
  Weight: 101.15 kg

DRUGS (2)
  1. METHOTREXATE [Suspect]
     Indication: CENTRAL NERVOUS SYSTEM LYMPHOMA
     Dosage: SEE IMAGE
     Dates: start: 20050713, end: 20050713
  2. THIOTEPA [Suspect]
     Dates: end: 20050713

REACTIONS (4)
  - ABDOMINAL PAIN [None]
  - CHILLS [None]
  - PYREXIA [None]
  - UROSEPSIS [None]
